FAERS Safety Report 5530091-6 (Version None)
Quarter: 2007Q4

REPORT INFORMATION
  Report Type: 
  Country: None (occurrence: None)
  Receive Date: 20071119
  Receipt Date: 20070822
  Transmission Date: 20080405
  Serious: No
  Sender: FDA-Public Use
  Company Number: TPA2007A01792

PATIENT
  Age: 46 Year
  Sex: Female
  Weight: 43.9989 kg

DRUGS (11)
  1. ROZEREM [Suspect]
     Indication: CIRCADIAN RHYTHM SLEEP DISORDER
     Dosage: 8 MG, HS, PER ORAL
     Route: 048
     Dates: start: 20070701
  2. TEGRETOL [Concomitant]
  3. TEGRETOL-XR [Concomitant]
  4. DEXEDRINE [Concomitant]
  5. EFFEXOR XR [Concomitant]
  6. NEXIUM [Concomitant]
  7. KLONOPIN [Concomitant]
  8. PROCARDIA [Concomitant]
  9. LEVSEN (HYOSCYAMINE SULFATE) [Concomitant]
  10. TRAZODONE HCL [Concomitant]
  11. SYNTHROID [Concomitant]

REACTIONS (1)
  - MIDDLE INSOMNIA [None]
